FAERS Safety Report 6532852-3 (Version None)
Quarter: 2010Q1

REPORT INFORMATION
  Report Type: 
  Country: None (occurrence: None)
  Receive Date: 20100111
  Receipt Date: 20091210
  Transmission Date: 20100710
  Serious: No
  Sender: FDA-Public Use
  Company Number: US-BAYER-200917649BCC

PATIENT
  Age: 53 Year
  Sex: Female
  Weight: 68 kg

DRUGS (5)
  1. ALEVE (CAPLET) [Suspect]
     Indication: ARTHRITIS
     Dosage: TOTAL DAILY DOSE: 440 MG  UNIT DOSE: 220 MG
     Route: 048
     Dates: start: 20091207, end: 20091207
  2. ALEVE (CAPLET) [Suspect]
     Dosage: TOTAL DAILY DOSE: 220 MG  UNIT DOSE: 220 MG
     Route: 048
     Dates: start: 20091209
  3. HYDROCODONE [Concomitant]
     Route: 065
  4. PRILOSEC [Concomitant]
     Route: 065
  5. HORMONE [Concomitant]
     Route: 065

REACTIONS (5)
  - FEELING JITTERY [None]
  - INSOMNIA [None]
  - NERVOUSNESS [None]
  - POOR QUALITY SLEEP [None]
  - SOMNOLENCE [None]
